FAERS Safety Report 10972745 (Version 2)
Quarter: 2015Q2

REPORT INFORMATION
  Report Type: Report from Study
  Country: US (occurrence: US)
  Receive Date: 20150331
  Receipt Date: 20150427
  Transmission Date: 20150821
  Serious: Yes (Hospitalization)
  Sender: FDA-Public Use
  Company Number: US-009507513-1503USA006865

PATIENT
  Age: 70 Year
  Sex: Female
  Weight: 53.4 kg

DRUGS (12)
  1. NEXIUM [Concomitant]
     Active Substance: ESOMEPRAZOLE MAGNESIUM
     Indication: PROPHYLAXIS
     Dosage: 80 MG, QD
     Route: 048
     Dates: start: 20101130, end: 20120405
  2. CHOLECALCIFEROL [Concomitant]
     Active Substance: CHOLECALCIFEROL
     Indication: ROUTINE HEALTH MAINTENANCE
     Dosage: 2000 MG, QD
     Route: 048
     Dates: start: 201005
  3. CALCIUM (UNSPECIFIED) [Concomitant]
     Active Substance: CALCIUM
     Indication: ROUTINE HEALTH MAINTENANCE
     Dosage: 600 MG, BID
     Route: 048
     Dates: start: 2000
  4. VITAMINS (UNSPECIFIED) [Concomitant]
     Active Substance: VITAMINS
     Indication: ROUTINE HEALTH MAINTENANCE
     Dosage: 1 TAB, QD
     Route: 048
     Dates: start: 1995
  5. CINNAMON. [Concomitant]
     Active Substance: CINNAMON
     Indication: ROUTINE HEALTH MAINTENANCE
     Dosage: 500 MG, QW
     Route: 048
     Dates: start: 2008
  6. SIMVASTATIN. [Concomitant]
     Active Substance: SIMVASTATIN
     Indication: DYSLIPIDAEMIA
     Dosage: 40 MG, QD
     Route: 048
     Dates: start: 201008
  7. BENICAR [Concomitant]
     Active Substance: OLMESARTAN MEDOXOMIL
     Indication: HYPERTENSION
     Dosage: 20 MG, QD
     Route: 048
     Dates: start: 2008
  8. FOSAMAX [Suspect]
     Active Substance: ALENDRONATE SODIUM
     Indication: OSTEOPENIA
     Dosage: 35 MG, QW
     Route: 048
     Dates: start: 201010, end: 20110729
  9. OMEGA-3 ACIDS [Concomitant]
     Active Substance: OMEGA-3 FATTY ACIDS
     Indication: ROUTINE HEALTH MAINTENANCE
     Dosage: 300 MG, BID
     Route: 048
     Dates: start: 2009
  10. FIBER [Concomitant]
     Active Substance: PSYLLIUM HUSK
     Indication: ROUTINE HEALTH MAINTENANCE
     Dosage: 2 CAPS., BID
     Route: 048
     Dates: start: 200605
  11. NORVASC [Concomitant]
     Active Substance: AMLODIPINE BESYLATE
     Indication: HYPERTENSION
     Dosage: 5 MG, QD
     Route: 048
     Dates: start: 2007
  12. METFORMIN [Suspect]
     Active Substance: METFORMIN HYDROCHLORIDE
     Indication: DIABETES MELLITUS
     Dosage: 500 MG, TID
     Route: 048
     Dates: start: 20110509, end: 20110706

REACTIONS (2)
  - Condition aggravated [Recovered/Resolved]
  - Gastrooesophageal reflux disease [Recovered/Resolved]

NARRATIVE: CASE EVENT DATE: 20110615
